FAERS Safety Report 23357241 (Version 1)
Quarter: 2023Q4

REPORT INFORMATION
  Report Type: Spontaneous
  Country: US (occurrence: None)
  Receive Date: 20231230
  Receipt Date: 20231230
  Transmission Date: 20240110
  Serious: Yes (Hospitalization)
  Sender: FDA-Public Use
  Company Number: None

PATIENT
  Age: 73 Year
  Sex: Male

DRUGS (8)
  1. HALDOL [Suspect]
     Active Substance: HALOPERIDOL
     Dosage: OTHER QUANTITY : 2 5 MG TOTAL;?OTHER ROUTE : BOTH ORAL AND INJECTION;?
     Route: 050
     Dates: start: 20231221, end: 20231225
  2. HALOPERIDOL LACTATE [Suspect]
     Active Substance: HALOPERIDOL LACTATE
  3. FAMOTIDINE [Concomitant]
     Active Substance: FAMOTIDINE
  4. HEPARIN SODIUM, PORCINE [Concomitant]
     Active Substance: HEPARIN SODIUM
  5. influenza quadrivalent [Concomitant]
  6. INSULIN LISPRO [Concomitant]
     Active Substance: INSULIN LISPRO
  7. LORAZEPAM [Concomitant]
     Active Substance: LORAZEPAM
  8. SODIUM CHLORIDE [Concomitant]
     Active Substance: SODIUM CHLORIDE

REACTIONS (9)
  - Gait inability [None]
  - Mental status changes [None]
  - Acute kidney injury [None]
  - Lethargy [None]
  - Hyporesponsive to stimuli [None]
  - Pyrexia [None]
  - Influenza [None]
  - Electrocardiogram QT prolonged [None]
  - Blood glucose increased [None]

NARRATIVE: CASE EVENT DATE: 20231225
